FAERS Safety Report 7225879-X (Version None)
Quarter: 2011Q1

REPORT INFORMATION
  Report Type: 
  Country: None (occurrence: None)
  Receive Date: 20110113
  Receipt Date: 20110103
  Transmission Date: 20110831
  Serious: Yes (Other)
  Sender: FDA-Public Use
  Company Number: US-SANOFI-AVENTIS-A03200703416

PATIENT
  Sex: Male
  Weight: 136.1 kg

DRUGS (11)
  1. VITAMIN E [Concomitant]
     Route: 065
  2. ASPIRIN [Concomitant]
     Route: 048
  3. SOMA [Concomitant]
     Route: 065
  4. FISH OIL [Concomitant]
     Route: 065
  5. CLOPIDOGREL BISULFATE [Suspect]
     Dosage: UNIT DOSE: 75 MG
     Route: 048
     Dates: start: 20050101, end: 20050101
  6. CLOPIDOGREL BISULFATE [Suspect]
     Indication: PULMONARY EMBOLISM
     Dosage: UNIT DOSE: 75 MG
     Route: 048
     Dates: start: 20050101, end: 20050101
  7. ULTRAM [Concomitant]
     Route: 048
  8. MORPHINE [Concomitant]
     Route: 065
  9. XANAX [Concomitant]
     Route: 065
  10. FOLIC ACID [Concomitant]
     Route: 065
  11. DIPHENHYDRAMINE HYDROCHLORIDE [Concomitant]
     Route: 065

REACTIONS (4)
  - BURNING SENSATION [None]
  - CONTUSION [None]
  - FALL [None]
  - PHLEBITIS [None]
